FAERS Safety Report 5713598-8 (Version None)
Quarter: 2008Q2

REPORT INFORMATION
  Report Type: 
  Country: None (occurrence: None)
  Receive Date: 20080422
  Receipt Date: 20080410
  Transmission Date: 20081010
  Serious: Yes (Hospitalization)
  Sender: FDA-Public Use
  Company Number: US-ELI_LILLY_AND_COMPANY-US200804003502

PATIENT
  Sex: Female

DRUGS (1)
  1. CYMBALTA [Suspect]
     Dosage: 1 D/F, UNK

REACTIONS (8)
  - AFFECTIVE DISORDER [None]
  - AMNESIA [None]
  - CRYING [None]
  - EMOTIONAL DISORDER [None]
  - HOSPITALISATION [None]
  - HYPERHIDROSIS [None]
  - PAIN [None]
  - PHYSICAL DISABILITY [None]
